FAERS Safety Report 8861035 (Version 1)
Quarter: 2012Q4

REPORT INFORMATION
  Report Type: 
  Country: DE (occurrence: DE)
  Receive Date: 20121025
  Receipt Date: 20121025
  Transmission Date: 20130627
  Serious: Yes (Hospitalization)
  Sender: FDA-Public Use
  Company Number: DE-ELI_LILLY_AND_COMPANY-DE201210004184

PATIENT
  Age: 60 Year
  Sex: Female

DRUGS (6)
  1. GEMZAR [Suspect]
     Indication: MALIGNANT PERITONEAL NEOPLASM
     Dosage: UNK
     Route: 042
     Dates: start: 20121005
  2. CONCOR [Concomitant]
  3. RASILEZ [Concomitant]
  4. MARCUMAR [Concomitant]
  5. SORTIS [Concomitant]
  6. ANALGESICS [Concomitant]

REACTIONS (2)
  - Abdominal pain upper [Recovered/Resolved]
  - Intestinal obstruction [Recovered/Resolved]
